FAERS Safety Report 7751209-0 (Version None)
Quarter: 2011Q3

REPORT INFORMATION
  Report Type: 
  Country: None (occurrence: None)
  Receive Date: 20110914
  Receipt Date: 20071127
  Transmission Date: 20111222
  Serious: Yes (Hospitalization)
  Sender: FDA-Public Use
  Company Number: PHHY2007NL03776

PATIENT
  Sex: Male

DRUGS (2)
  1. SANDOSTATIN LAR [Suspect]
     Indication: CARCINOID TUMOUR
     Dosage: 20 MG, ONCE PER 4 WEEKS
     Route: 065
     Dates: start: 20070618
  2. SANDOSTATIN LAR [Suspect]
     Dosage: 20 MG, ONCE PER 4 WEEKS
     Route: 065
     Dates: start: 20080408

REACTIONS (2)
  - MALAISE [None]
  - TERMINAL STATE [None]
